FAERS Safety Report 10506843 (Version 1)
Quarter: 2014Q4

REPORT INFORMATION
  Report Type: Spontaneous
  Country: US (occurrence: None)
  Receive Date: 20141007
  Receipt Date: 20141007
  Transmission Date: 20150528
  Serious: Yes (Death, Hospitalization)
  Sender: FDA-Public Use
  Company Number: MIN-00993

PATIENT
  Age: 46 Year
  Sex: Female

DRUGS (1)
  1. MINOCYCLINE [Suspect]
     Active Substance: MINOCYCLINE\MINOCYCLINE HYDROCHLORIDE
     Indication: DERMATITIS
     Dosage: BEFORE ONSET OF SYMPTOMS
     Route: 048

REACTIONS (13)
  - Myocarditis [None]
  - Tubulointerstitial nephritis [None]
  - Shock [None]
  - Metabolic acidosis [None]
  - Acute kidney injury [None]
  - Atrial fibrillation [None]
  - Atrioventricular block first degree [None]
  - Pericardial effusion [None]
  - Multi-organ failure [None]
  - Eosinophilic myocarditis [None]
  - Bundle branch block left [None]
  - Drug reaction with eosinophilia and systemic symptoms [None]
  - Right ventricular failure [None]

NARRATIVE: CASE EVENT DATE: 201402
